FAERS Safety Report 19381463 (Version 1)
Quarter: 2021Q2

REPORT INFORMATION
  Report Type: Spontaneous
  Country: RU (occurrence: RU)
  Receive Date: 20210607
  Receipt Date: 20210607
  Transmission Date: 20210717
  Serious: Yes (Other)
  Sender: FDA-Public Use
  Company Number: RU-ROCHE-2839751

PATIENT
  Age: 31 Year
  Sex: Male

DRUGS (5)
  1. EMICIZUMAB. [Suspect]
     Active Substance: EMICIZUMAB
     Indication: FACTOR VIII DEFICIENCY
     Route: 058
     Dates: start: 2019, end: 20210422
  2. CRYOPRECIPITATE [Concomitant]
     Active Substance: CRYOPRECIPITATED ANTIHEMOPHILIC FACTOR (HUMAN)
     Dates: start: 2006
  3. FACTOR VIII [Suspect]
     Active Substance: ANTIHEMOPHILIC FACTOR HUMAN
     Route: 065
     Dates: start: 20210507
  4. MOROCTOCOG ALFA [Concomitant]
     Active Substance: ANTIHEMOPHILIC FACTOR, HUMAN RECOMBINANT RESIDUES 743-1636 DELETED
  5. FACTOR VIII [Suspect]
     Active Substance: ANTIHEMOPHILIC FACTOR HUMAN
     Indication: FACTOR VIII DEFICIENCY
     Dosage: 2000 IU WAS ADMINISTERED NTRAOPERATIVELY,ON THE EVENING OF SURGERY FVIII WAS ADMINISTERED AT 35 IU/K
     Route: 065
     Dates: start: 2016, end: 20210506

REACTIONS (5)
  - Joint instability [Unknown]
  - Fibrosis [Unknown]
  - Pain in extremity [Unknown]
  - Inguinal hernia [Unknown]
  - Arthralgia [Unknown]

NARRATIVE: CASE EVENT DATE: 202011
